FAERS Safety Report 4887824-1 (Version None)
Quarter: 2006Q1

REPORT INFORMATION
  Report Type: 
  Country: None (occurrence: None)
  Receive Date: 20060118
  Receipt Date: 20060113
  Transmission Date: 20060701
  Serious: Yes (Hospitalization)
  Sender: FDA-Public Use
  Company Number: S06-USA-00165-01

PATIENT
  Sex: Male

DRUGS (1)
  1. NAMENDA [Suspect]
     Dosage: UNK
     Route: 065

REACTIONS (1)
  - PANCREATITIS ACUTE [None]
